FAERS Safety Report 7125519-4 (Version None)
Quarter: 2010Q4

REPORT INFORMATION
  Report Type: 
  Country: None (occurrence: None)
  Receive Date: 20101129
  Receipt Date: 20101115
  Transmission Date: 20110411
  Serious: Yes (Hospitalization, Other)
  Sender: FDA-Public Use
  Company Number: US-ASTRAZENECA-2010SE54279

PATIENT
  Age: 20 Year
  Sex: Female
  Weight: 60 kg

DRUGS (32)
  1. PROPOFOL [Suspect]
     Indication: SEDATIVE THERAPY
     Dosage: 2.4 MG/KG/HOUR
     Route: 042
  2. PROPOFOL [Suspect]
     Indication: ANALGESIC THERAPY
     Dosage: 2.4 MG/KG/HOUR
     Route: 042
  3. PROPOFOL [Suspect]
     Dosage: DOSE WAS INCREASED FROM 2.4 MG/KG/H TO 6.6  MG/KG/HOUR
     Route: 042
  4. PROPOFOL [Suspect]
     Dosage: DOSE WAS INCREASED FROM 2.4 MG/KG/H TO 6.6  MG/KG/HOUR
     Route: 042
  5. PROPOFOL [Suspect]
     Dosage: 7.5  MG/KG/HOUR
     Route: 042
  6. PROPOFOL [Suspect]
     Dosage: 7.5  MG/KG/HOUR
     Route: 042
  7. PROPOFOL [Suspect]
     Dosage: 3 MG/KG/HOUR
     Route: 042
  8. PROPOFOL [Suspect]
     Dosage: 3 MG/KG/HOUR
     Route: 042
  9. PROPOFOL [Suspect]
     Dosage: 9  MG/KG/HOUR
     Route: 042
  10. PROPOFOL [Suspect]
     Dosage: 9  MG/KG/HOUR
     Route: 042
  11. PIPERACILLIN AND TAZOBACTAM [Suspect]
     Indication: PNEUMONIA KLEBSIELLA
     Route: 042
  12. PIPERACILLIN AND TAZOBACTAM [Suspect]
     Indication: PNEUMONIA STAPHYLOCOCCAL
     Route: 042
  13. MEROPENEM [Suspect]
     Indication: PNEUMONIA KLEBSIELLA
     Route: 042
  14. MEROPENEM [Suspect]
     Indication: PNEUMONIA STAPHYLOCOCCAL
     Route: 042
  15. FENTANYL [Suspect]
     Indication: SEDATIVE THERAPY
     Dosage: 25 UG/HOUR
     Route: 042
  16. FENTANYL [Suspect]
     Indication: ANALGESIC THERAPY
     Dosage: 25 UG/HOUR
     Route: 042
  17. FENTANYL [Suspect]
     Dosage: 80  UG/HOUR
     Route: 042
  18. FENTANYL [Suspect]
     Dosage: 80  UG/HOUR
     Route: 042
  19. FENTANYL [Suspect]
     Dosage: 400   UG/HOUR
     Route: 042
  20. FENTANYL [Suspect]
     Dosage: 400   UG/HOUR
     Route: 042
  21. FENTANYL [Suspect]
     Dosage: 4600   UG/HOUR
     Route: 042
  22. FENTANYL [Suspect]
     Dosage: 4600   UG/HOUR
     Route: 042
  23. ENOXAPARIN [Suspect]
     Indication: ANTICOAGULANT THERAPY
  24. VINCRISTINE [Suspect]
     Indication: CHEMOTHERAPY
  25. DOXORUBICIN [Suspect]
     Indication: CHEMOTHERAPY
  26. CYCLOPHOSPHAMIDE [Suspect]
     Indication: CHEMOTHERAPY
  27. VINBLASTINE [Suspect]
     Indication: CHEMOTHERAPY
  28. DACARBAZINE [Suspect]
     Indication: CHEMOTHERAPY
  29. LINEZOLID [Suspect]
     Indication: PNEUMONIA KLEBSIELLA
  30. LINEZOLID [Suspect]
     Indication: PNEUMONIA STAPHYLOCOCCAL
  31. AMPHOTERICIN B [Suspect]
     Indication: CANDIDIASIS
  32. MIDAZOLAM [Suspect]
     Indication: SEDATIVE THERAPY
     Dosage: 10 MG/HOUR
     Route: 042

REACTIONS (5)
  - DRUG EXPOSURE DURING PREGNANCY [None]
  - FOETAL GROWTH RESTRICTION [None]
  - HYPERTRIGLYCERIDAEMIA [None]
  - INTRA-UTERINE DEATH [None]
  - OLIGOHYDRAMNIOS [None]
